FAERS Safety Report 9541685 (Version 1)
Quarter: 2013Q3

REPORT INFORMATION
  Report Type: Spontaneous
  Country: US (occurrence: None)
  Receive Date: 20130919
  Receipt Date: 20130919
  Transmission Date: 20140515
  Serious: Yes (Life-Threatening)
  Sender: FDA-Public Use
  Company Number: None

PATIENT
  Age: 21 Year
  Sex: Female

DRUGS (4)
  1. OMNIPAQUE 350 MGI/ML [Suspect]
     Indication: SCAN WITH CONTRAST
     Dosage: 100 (UNSURE IF THIS IS ML) INTRAVENOUS
     Route: 042
     Dates: start: 20121114
  2. MD-GASTROVIEW [Concomitant]
  3. MORPHINE [Concomitant]
  4. ONDANSETRON [Concomitant]

REACTIONS (4)
  - Anaphylactic reaction [None]
  - Dyspnoea [None]
  - Oral discomfort [None]
  - Paraesthesia oral [None]
